FAERS Safety Report 4759701-8 (Version None)
Quarter: 2005Q3

REPORT INFORMATION
  Report Type: 
  Country: None (occurrence: None)
  Receive Date: 20050831
  Receipt Date: 20050816
  Transmission Date: 20060218
  Serious: Yes (Other)
  Sender: FDA-Public Use
  Company Number: USA0507102191

PATIENT
  Age: 73 Year
  Sex: Female

DRUGS (11)
  1. FORTEO [Suspect]
     Indication: OSTEOPOROSIS
     Dates: start: 20050401, end: 20050701
  2. PLAQUENIL [Concomitant]
  3. METHOTREXATE [Concomitant]
  4. NEXIUM [Concomitant]
  5. CARDIZEM [Concomitant]
  6. SYNTHROID [Concomitant]
  7. FOLIC ACID [Concomitant]
  8. K-DUR 10 [Concomitant]
  9. FLUOXETINE HCL [Concomitant]
  10. PEE PILLS [Concomitant]
  11. MULTI-VITAMIN [Concomitant]

REACTIONS (8)
  - ALOPECIA [None]
  - FEELING ABNORMAL [None]
  - GASTRIC DISORDER [None]
  - HYPOTRICHOSIS [None]
  - MUSCLE INJURY [None]
  - PHARMACEUTICAL PRODUCT COMPLAINT [None]
  - SHOULDER ARTHROPLASTY [None]
  - SKIN CANCER [None]
